FAERS Safety Report 10149595 (Version 1)
Quarter: 2014Q2

REPORT INFORMATION
  Report Type: Spontaneous
  Country: US (occurrence: None)
  Receive Date: 20140501
  Receipt Date: 20140501
  Transmission Date: 20141212
  Serious: Yes (Hospitalization)
  Sender: FDA-Public Use
  Company Number: None

PATIENT
  Age: 70 Year
  Sex: Female

DRUGS (7)
  1. HEPARIN [Suspect]
     Indication: THROMBOSIS PROPHYLAXIS
     Route: 058
     Dates: start: 20130722, end: 20130723
  2. HYDRALAZINE [Concomitant]
  3. LORAZEPAM [Concomitant]
  4. MILRINONE [Concomitant]
  5. ZINC OXIDE [Concomitant]
  6. PANTOPRAZOLE [Concomitant]
  7. ISOSORBIDE DINITRATE [Concomitant]

REACTIONS (1)
  - Gastrointestinal haemorrhage [None]
